FAERS Safety Report 16508943 (Version 2)
Quarter: 2019Q3

REPORT INFORMATION
  Report Type: Report from Study
  Country: IT (occurrence: IT)
  Receive Date: 20190701
  Receipt Date: 20190702
  Transmission Date: 20191004
  Serious: Yes (Other)
  Sender: FDA-Public Use
  Company Number: IT-TEVA-2019-IT-1070980

PATIENT
  Age: 20 Year
  Sex: Male

DRUGS (2)
  1. LEVODROPROPIZINE [Concomitant]
     Active Substance: LEVODROPROPIZINE
  2. KETOPROFEN LYSINE [Suspect]
     Active Substance: KETOPROFEN LYSINE
     Indication: LARYNGITIS
     Dosage: 1DF PER REQUIRED
     Route: 048

REACTIONS (2)
  - Urticaria [Recovering/Resolving]
  - Generalised erythema [Recovering/Resolving]

NARRATIVE: CASE EVENT DATE: 20190410
